FAERS Safety Report 6444025-3 (Version None)
Quarter: 2009Q4

REPORT INFORMATION
  Report Type: 
  Country: None (occurrence: None)
  Receive Date: 20091116
  Receipt Date: 20091116
  Transmission Date: 20100525
  Serious: No
  Sender: FDA-Public Use
  Company Number: None

PATIENT
  Age: 87 Year
  Sex: Female
  Weight: 55.7924 kg

DRUGS (12)
  1. EVEROLIMUS [Suspect]
     Indication: LYMPHOMA
     Dosage: 5-10MG
     Dates: start: 20090904, end: 20091010
  2. RITUXIMAB [Suspect]
     Indication: LYMPHOMA
     Dosage: 375MG/M2
     Dates: start: 20090904, end: 20091002
  3. ATIVAN [Concomitant]
  4. COMPAZINE [Concomitant]
  5. DIGOXIN [Concomitant]
  6. DILTIAZEM [Concomitant]
  7. LEVOTHROID [Concomitant]
  8. PREDNISONE [Concomitant]
  9. NYSTATIN [Concomitant]
  10. TRANSFUSION 2 UNITS BLOOD [Concomitant]
  11. BACTRIM DS [Concomitant]
  12. COUMADIN [Concomitant]

REACTIONS (9)
  - DECREASED APPETITE [None]
  - DIARRHOEA [None]
  - DYSPNOEA [None]
  - FATIGUE [None]
  - HAEMATOCHEZIA [None]
  - MALIGNANT NEOPLASM PROGRESSION [None]
  - PYREXIA [None]
  - TROPONIN INCREASED [None]
  - URINE ANALYSIS ABNORMAL [None]
